FAERS Safety Report 15840450 (Version 2)
Quarter: 2019Q1

REPORT INFORMATION
  Report Type: Spontaneous
  Country: AU (occurrence: AU)
  Receive Date: 20190118
  Receipt Date: 20190208
  Transmission Date: 20190417
  Serious: Yes (Death)
  Sender: FDA-Public Use
  Company Number: AU-009507513-1901AUS005980

PATIENT
  Age: 39 Year
  Sex: Male

DRUGS (11)
  1. CODEINE [Suspect]
     Active Substance: CODEINE
     Dosage: CONCENTRATION IN PRESERVED PERIPHERAL BLOOD 0.50 MG/L
  2. ACETAMINOPHEN. [Suspect]
     Active Substance: ACETAMINOPHEN
     Dosage: CONCENTRATION IN PRESERVED PERIPHERAL BLOOD 22 MG/L
  3. NORDAZEPAM [Suspect]
     Active Substance: NORDAZEPAM
     Dosage: CONCENTRATION IN PRESERVED PERIPHERAL BLOOD 0.8 MG/L
  4. TAPENTADOL [Suspect]
     Active Substance: TAPENTADOL
     Dosage: PRESENT IN PRESERVED PERIPHERAL BLOOD
  5. MIRTAZAPINE. [Suspect]
     Active Substance: MIRTAZAPINE
     Dosage: CONCENTRATION IN PRESERVED PERIPHERAL BLOOD 0.08 MG/L
     Route: 048
  6. DIAZEPAM. [Suspect]
     Active Substance: DIAZEPAM
     Dosage: CONCENTRATION IN PRESERVED PERIPHERAL BLOOD 0.2 MG/L
  7. ZOLPIDEM [Concomitant]
     Active Substance: ZOLPIDEM\ZOLPIDEM TARTRATE
     Dosage: NON-TOXIC
  8. MORPHINE [Suspect]
     Active Substance: MORPHINE
     Dosage: CONCENTRATION IN PRESERVED PERIPHERAL BLOOD 0.43 MG/L
  9. OLANZAPINE. [Suspect]
     Active Substance: OLANZAPINE
     Dosage: CONCENTRATION IN PRESERVED PERIPHERAL BLOOD 0.009 MG/L
  10. NITRAZEPAM [Suspect]
     Active Substance: NITRAZEPAM
     Dosage: 7-AMINONITRAZEPAM IN PRESERVED PERIPHERAL BLOOD 0.01MG/L
  11. OXAZEPAM. [Suspect]
     Active Substance: OXAZEPAM
     Dosage: CONCENTRATION IN PRESERVED PERIPHERAL BLOOD 0.04 MG/L

REACTIONS (1)
  - Toxicity to various agents [Fatal]
